FAERS Safety Report 14692067 (Version 2)
Quarter: 2018Q2

REPORT INFORMATION
  Report Type: Report from Study
  Country: None (occurrence: US)
  Receive Date: 20180329
  Receipt Date: 20180427
  Transmission Date: 20180711
  Serious: Yes (Hospitalization)
  Sender: FDA-Public Use
  Company Number: US-ABBVIE-18K-163-2296782-00

PATIENT
  Age: 75 Year
  Sex: Female

DRUGS (3)
  1. POTASSIUM CHLORIDE. [Concomitant]
     Active Substance: POTASSIUM CHLORIDE
     Indication: PRODUCT USED FOR UNKNOWN INDICATION
  2. LIPOAMID [Concomitant]
     Indication: PRODUCT USED FOR UNKNOWN INDICATION
  3. HUMIRA [Suspect]
     Active Substance: ADALIMUMAB
     Indication: RHEUMATOID ARTHRITIS
     Route: 058
     Dates: start: 201612, end: 20180301

REACTIONS (6)
  - Dysphagia [Recovering/Resolving]
  - Large intestine perforation [Recovering/Resolving]
  - Heart rate increased [Recovered/Resolved]
  - Mobility decreased [Unknown]
  - Proctalgia [Recovering/Resolving]
  - Wound [Unknown]

NARRATIVE: CASE EVENT DATE: 201803
